FAERS Safety Report 23563530 (Version 9)
Quarter: 2024Q3

REPORT INFORMATION
  Report Type: Report from Study
  Country: CA (occurrence: CA)
  Receive Date: 20240226
  Receipt Date: 20240916
  Transmission Date: 20241017
  Serious: Yes (Hospitalization, Other)
  Sender: GLAXOSMITHKLINE
  Company Number: CA-GLAXOSMITHKLINE-CA2023181191

PATIENT

DRUGS (13)
  1. MEPOLIZUMAB [Suspect]
     Active Substance: MEPOLIZUMAB
     Indication: Asthma
     Dosage: 100 MG, Q4W
     Route: 058
     Dates: start: 20180515
  2. MEPOLIZUMAB [Suspect]
     Active Substance: MEPOLIZUMAB
     Indication: Asthma
     Dosage: 100 MG, Q4W
     Route: 058
  3. MEPOLIZUMAB [Suspect]
     Active Substance: MEPOLIZUMAB
     Indication: Asthma
     Dosage: 100 MG, Q4W
     Route: 058
  4. MEPOLIZUMAB [Suspect]
     Active Substance: MEPOLIZUMAB
     Indication: Asthma
     Dosage: 100 MG, Q4W
     Route: 058
  5. MEPOLIZUMAB [Suspect]
     Active Substance: MEPOLIZUMAB
     Indication: Asthma
     Dosage: 100 MG, Q4W
     Route: 058
  6. MEPOLIZUMAB [Suspect]
     Active Substance: MEPOLIZUMAB
     Indication: Asthma
     Dosage: 100 MG, Q4W
     Route: 058
  7. MEPOLIZUMAB [Suspect]
     Active Substance: MEPOLIZUMAB
     Indication: Asthma
     Dosage: 100 MG, Q4W
     Route: 058
  8. VENTOLIN [Concomitant]
     Active Substance: ALBUTEROL SULFATE
     Indication: Product used for unknown indication
     Dosage: UNK, AS NEEDED (SINCE 1989)
     Dates: start: 1989
  9. SPIRIVA [Concomitant]
     Active Substance: TIOTROPIUM BROMIDE MONOHYDRATE
     Indication: Product used for unknown indication
     Dosage: 2 PUFFS, QD, 2 IN DIE
  10. SYMBICORT [Concomitant]
     Active Substance: BUDESONIDE\FORMOTEROL FUMARATE DIHYDRATE
     Indication: Product used for unknown indication
     Dosage: 2 PUFF(S), BID (200)
  11. SINGULAIR [Concomitant]
     Active Substance: MONTELUKAST SODIUM
     Indication: Product used for unknown indication
     Dosage: UNK, QD
  12. MONTELUKAST [Concomitant]
     Active Substance: MONTELUKAST SODIUM
     Indication: Product used for unknown indication
     Dosage: UNK, QD
  13. CORTISONE [Concomitant]
     Active Substance: CORTISONE
     Indication: Product used for unknown indication
     Dosage: UNK

REACTIONS (6)
  - Pneumonia [Unknown]
  - Oxygen saturation decreased [Not Recovered/Not Resolved]
  - Dependence on oxygen therapy [Not Recovered/Not Resolved]
  - Bronchitis [Unknown]
  - Productive cough [Recovering/Resolving]
  - Oxygen saturation abnormal [Unknown]

NARRATIVE: CASE EVENT DATE: 20231201
